FAERS Safety Report 8230365-4 (Version None)
Quarter: 2012Q1

REPORT INFORMATION
  Report Type: 
  Country: None (occurrence: None)
  Receive Date: 20120320
  Receipt Date: 20120307
  Transmission Date: 20120608
  Serious: Yes (Hospitalization)
  Sender: FDA-Public Use
  Company Number: 2012S1000309

PATIENT
  Age: 77 Year
  Sex: Female

DRUGS (6)
  1. ASPIRIN [Concomitant]
  2. BISOPROLOL FUMARATE [Concomitant]
  3. ALPRAM [Concomitant]
  4. CLOART [Concomitant]
  5. RAMIPRIL [Concomitant]
  6. LIVALO [Suspect]
     Indication: ACUTE MYOCARDIAL INFARCTION
     Dosage: 4 MG;1X;PO
     Route: 048
     Dates: start: 20110725

REACTIONS (4)
  - HAEMOGLOBIN DECREASED [None]
  - INCISION SITE HAEMORRHAGE [None]
  - HYPOAESTHESIA [None]
  - CHEST PAIN [None]
